FAERS Safety Report 25957731 (Version 3)
Quarter: 2025Q4

REPORT INFORMATION
  Report Type: Spontaneous
  Country: JP (occurrence: JP)
  Receive Date: 20251024
  Receipt Date: 20251119
  Transmission Date: 20260117
  Serious: Yes (Death, Other)
  Sender: MALLINCKRODT
  Company Number: JP-MALLINCKRODT-MNK202506592

PATIENT
  Age: 86 Year
  Sex: Female

DRUGS (3)
  1. NITRIC OXIDE [Suspect]
     Active Substance: NITRIC OXIDE
     Indication: Pulmonary hypertension
     Dosage: UNKNOWN
     Route: 055
  2. HEPARIN [Concomitant]
     Active Substance: HEPARIN SODIUM
     Dosage: UNKNOWN
  3. PROTAMINE [Concomitant]
     Active Substance: PROTAMINE
     Dosage: UNKNOWN

REACTIONS (3)
  - Cardiac arrest [Fatal]
  - Cardiac ventricular thrombosis [Unknown]
  - Pulmonary embolism [Unknown]
